FAERS Safety Report 8028013-1 (Version None)
Quarter: 2012Q1

REPORT INFORMATION
  Report Type: 
  Country: None (occurrence: None)
  Receive Date: 20120106
  Receipt Date: 20100721
  Transmission Date: 20120608
  Serious: Yes (Other)
  Sender: FDA-Public Use
  Company Number: AU-ROCHE-1024070

PATIENT
  Age: 46 Year
  Sex: Female

DRUGS (4)
  1. FLUOROURACIL [Concomitant]
     Indication: RECTAL CANCER
  2. BEVACIZUMAB [Suspect]
     Indication: RECTAL CANCER
     Route: 065
  3. LEUCOVORIN CALCIUM [Concomitant]
     Indication: RECTAL CANCER
  4. IRINOTECAN HCL [Concomitant]
     Indication: RECTAL CANCER

REACTIONS (1)
  - DISEASE PROGRESSION [None]
